FAERS Safety Report 9710386 (Version 3)
Quarter: 2014Q1

REPORT INFORMATION
  Report Type: Spontaneous
  Country: US (occurrence: US)
  Receive Date: 20131126
  Receipt Date: 20140227
  Transmission Date: 20141002
  Serious: Yes (Hospitalization, Other)
  Sender: FDA-Public Use
  Company Number: US-ELI_LILLY_AND_COMPANY-US201311004936

PATIENT
  Age: 60 Year
  Sex: Male

DRUGS (6)
  1. HUMALOG LISPRO [Suspect]
     Indication: TYPE 2 DIABETES MELLITUS
     Dosage: UNK, PRN
     Route: 065
     Dates: start: 20120216
  2. HUMALOG LISPRO [Suspect]
     Dosage: UNK UNK, PRN
     Route: 065
     Dates: start: 20120216
  3. HUMALOG LISPRO [Suspect]
     Dosage: UNK UNK, PRN
     Route: 065
     Dates: start: 20120216
  4. HUMALOG LISPRO [Suspect]
     Dosage: UNK UNK, PRN
     Route: 065
     Dates: start: 20120216
  5. HUMALOG LISPRO [Suspect]
     Dosage: UNK, PRN
     Route: 065
     Dates: start: 20120216
  6. HUMALOG LISPRO [Suspect]
     Dosage: UNK, PRN
     Route: 065
     Dates: start: 20120216

REACTIONS (9)
  - Colonic abscess [Recovered/Resolved]
  - Abdominal abscess [Recovered/Resolved]
  - Sepsis [Recovered/Resolved]
  - Depression [Recovered/Resolved]
  - Glycosylated haemoglobin increased [Recovered/Resolved]
  - Fatigue [Recovered/Resolved]
  - Blood glucose increased [Recovered/Resolved]
  - Incorrect product storage [Recovered/Resolved]
  - Medication error [Recovered/Resolved]
